FAERS Safety Report 5244895-0 (Version None)
Quarter: 2007Q1

REPORT INFORMATION
  Report Type: 
  Country: None (occurrence: None)
  Receive Date: 20061201
  Receipt Date: 20060810
  Transmission Date: 20070707
  Serious: No
  Sender: FDA-Public Use
  Company Number: 2006PV019205

PATIENT
  Age: 69 Year
  Sex: Female

DRUGS (3)
  1. BYETTA [Suspect]
     Indication: DIABETES MELLITUS NON-INSULIN-DEPENDENT
     Dosage: 5 MCG;BID;SC
     Route: 058
     Dates: start: 20060801
  2. ANTIVERT [Suspect]
     Indication: VERTIGO
     Dates: start: 20060807
  3. GLUCOTROL [Concomitant]

REACTIONS (9)
  - DECREASED APPETITE [None]
  - DIARRHOEA [None]
  - DIZZINESS [None]
  - DRUG EFFECT DECREASED [None]
  - EARLY SATIETY [None]
  - FATIGUE [None]
  - NAUSEA [None]
  - RETCHING [None]
  - VERTIGO [None]
